FAERS Safety Report 5457196-2 (Version None)
Quarter: 2007Q3

REPORT INFORMATION
  Report Type: 
  Country: None (occurrence: None)
  Receive Date: 20070918
  Receipt Date: 20070219
  Transmission Date: 20080115
  Serious: Yes (Other)
  Sender: FDA-Public Use
  Company Number: US-ASTRAZENECA-2007UW01375

PATIENT
  Age: 8 Year
  Sex: Male
  Weight: 27.3 kg

DRUGS (2)
  1. SEROQUEL [Suspect]
     Indication: BIPOLAR DISORDER
     Route: 048
     Dates: start: 20061017, end: 20070101
  2. TEGRETOL [Concomitant]
     Indication: CONVULSION
     Route: 048
     Dates: start: 20050101

REACTIONS (1)
  - GRAND MAL CONVULSION [None]
